FAERS Safety Report 6480485-X (Version None)
Quarter: 2009Q4

REPORT INFORMATION
  Report Type: 
  Country: None (occurrence: None)
  Receive Date: 20091208
  Receipt Date: 20091123
  Transmission Date: 20100525
  Serious: Yes (Death)
  Sender: FDA-Public Use
  Company Number: CO-MILLENNIUM PHARMACEUTICALS, INC.-2009-04927

PATIENT

DRUGS (4)
  1. VELCADE [Suspect]
     Indication: MULTIPLE MYELOMA
     Dosage: 1.3 MG/M2, CYCLIC
     Dates: start: 20090101
  2. DEXAMETHASONE TAB [Concomitant]
     Indication: MULTIPLE MYELOMA
  3. ONDANSETRON [Concomitant]
  4. ZOLEDRONIC ACID [Concomitant]

REACTIONS (2)
  - MULTIPLE MYELOMA [None]
  - SEPSIS [None]
